FAERS Safety Report 11651312 (Version 4)
Quarter: 2015Q4

REPORT INFORMATION
  Report Type: Report from Study
  Country: US (occurrence: US)
  Receive Date: 20151022
  Receipt Date: 20151109
  Transmission Date: 20160304
  Serious: No
  Sender: FDA-Public Use
  Company Number: US-AMGEN-USASP2015109146

PATIENT
  Age: 60 Year
  Sex: Male

DRUGS (2)
  1. ENBREL [Suspect]
     Active Substance: ETANERCEPT
     Indication: PSORIASIS
  2. ENBREL [Suspect]
     Active Substance: ETANERCEPT
     Indication: RHEUMATOID ARTHRITIS
     Dosage: 50 MG, 2 TIMES/WK
     Route: 065
     Dates: start: 20151012, end: 201510

REACTIONS (5)
  - Generalised erythema [Unknown]
  - Drug hypersensitivity [Unknown]
  - Swelling [Unknown]
  - Adverse event [Unknown]
  - Hypoacusis [Unknown]

NARRATIVE: CASE EVENT DATE: 201510
